FAERS Safety Report 20511325 (Version 1)
Quarter: 2022Q1

REPORT INFORMATION
  Report Type: Spontaneous
  Country: US (occurrence: US)
  Receive Date: 20220224
  Receipt Date: 20220224
  Transmission Date: 20220423
  Serious: No
  Sender: FDA-Public Use
  Company Number: US-MYLANLABS-2022M1014080

PATIENT
  Age: 75 Year
  Sex: Male
  Weight: 140.6 kg

DRUGS (2)
  1. MESALAMINE [Suspect]
     Active Substance: MESALAMINE
     Indication: Colitis ulcerative
     Dosage: UNK (1 ENEMA EVERY 3 TO 4 DAYS)
     Route: 054
     Dates: start: 201902
  2. BALSALAZIDE [Concomitant]
     Active Substance: BALSALAZIDE
     Indication: Product used for unknown indication
     Dosage: UNK (9 CAPLETS OF 750 MG EACH BALSALAZIDE)

REACTIONS (1)
  - Off label use [Unknown]

NARRATIVE: CASE EVENT DATE: 20190201
